FAERS Safety Report 6247490-X (Version None)
Quarter: 2009Q2

REPORT INFORMATION
  Report Type: 
  Country: None (occurrence: None)
  Receive Date: 20090626
  Receipt Date: 20090619
  Transmission Date: 20091009
  Serious: Yes (Other)
  Sender: FDA-Public Use
  Company Number: US-JNJFOC-20090607623

PATIENT
  Age: 64 Year
  Sex: Male
  Weight: 83.92 kg

DRUGS (4)
  1. ST. JOSEPH ENTERIC COATED [Suspect]
     Indication: CARDIOVASCULAR EVENT PROPHYLAXIS
     Route: 048
  2. LOVASTATIN [Concomitant]
     Indication: BLOOD CHOLESTEROL INCREASED
  3. VITAMIN [Concomitant]
     Indication: MEDICAL DIET
     Dosage: 2-3 TIMES WEEKLY
  4. LISINOPRIL [Concomitant]
     Indication: HYPERTENSION

REACTIONS (1)
  - GASTRIC ULCER [None]
